FAERS Safety Report 9765485 (Version 1)
Quarter: 2013Q4

REPORT INFORMATION
  Report Type: Spontaneous
  Country: US (occurrence: US)
  Receive Date: 20131217
  Receipt Date: 20131217
  Transmission Date: 20140711
  Serious: No
  Sender: FDA-Public Use
  Company Number: US-GLAXOSMITHKLINE-A1007414A

PATIENT
  Age: 88 Year
  Sex: Male

DRUGS (11)
  1. VOTRIENT [Suspect]
     Indication: RENAL CELL CARCINOMA
     Dosage: 200MG FOUR TIMES PER DAY
     Route: 048
     Dates: start: 20121211, end: 20121218
  2. AVAPRO [Concomitant]
  3. ALLOPURINOL [Concomitant]
  4. FUROSEMIDE [Concomitant]
  5. DOXAZOSIN MESYLATE [Concomitant]
  6. METOPROLOL [Concomitant]
  7. LISINOPRIL [Concomitant]
  8. CLONIDINE [Concomitant]
  9. LEVOTHYROXINE [Concomitant]
  10. OXYCODONE [Concomitant]
  11. UNSPECIFIED MEDICATION [Concomitant]

REACTIONS (1)
  - Blood pressure increased [Recovering/Resolving]
